FAERS Safety Report 9334216 (Version 1)
Quarter: 2013Q2

REPORT INFORMATION
  Report Type: Spontaneous
  Country: US (occurrence: US)
  Receive Date: 20130606
  Receipt Date: 20130606
  Transmission Date: 20140414
  Serious: No
  Sender: FDA-Public Use
  Company Number: US-AMGEN-USASP2013023282

PATIENT
  Sex: Female

DRUGS (2)
  1. PROLIA [Suspect]
     Indication: OSTEOPOROSIS
     Dosage: UNK
     Dates: start: 201206
  2. NEXIUM                             /01479302/ [Concomitant]

REACTIONS (4)
  - Rash generalised [Unknown]
  - Urticaria [Recovered/Resolved]
  - Skin disorder [Unknown]
  - Lip dry [Unknown]
